FAERS Safety Report 11808242 (Version 3)
Quarter: 2016Q1

REPORT INFORMATION
  Report Type: Spontaneous
  Country: US (occurrence: US)
  Receive Date: 20151207
  Receipt Date: 20160111
  Transmission Date: 20160525
  Serious: Yes (Hospitalization, Other)
  Sender: FDA-Public Use
  Company Number: US-DSJP-DSU-2015-120480

PATIENT

DRUGS (3)
  1. BENICAR HCT [Suspect]
     Active Substance: HYDROCHLOROTHIAZIDE\OLMESARTAN MEDOXOMIL
     Indication: PRODUCT USED FOR UNKNOWN INDICATION
     Dosage: 40/25 MG, ONCE DAILY
     Route: 048
     Dates: start: 2009, end: 2013
  2. BENICAR [Suspect]
     Active Substance: OLMESARTAN MEDOXOMIL
     Indication: HYPERTENSION
     Dosage: UNK
  3. BENICAR HCT [Suspect]
     Active Substance: HYDROCHLOROTHIAZIDE\OLMESARTAN MEDOXOMIL
     Dosage: 40/25MG, ONCE DAILY
     Route: 048
     Dates: start: 2013, end: 201509

REACTIONS (10)
  - Dizziness [Unknown]
  - Cholelithiasis [Unknown]
  - Gastrectomy [Unknown]
  - Metabolic surgery [Unknown]
  - Anxiety [Unknown]
  - Ulcer [Recovered/Resolved]
  - Dyspepsia [Unknown]
  - Acute kidney injury [Unknown]
  - Gallbladder polyp [Unknown]
  - Headache [Unknown]

NARRATIVE: CASE EVENT DATE: 20101211
